FAERS Safety Report 19589433 (Version 3)
Quarter: 2021Q3

REPORT INFORMATION
  Report Type: Spontaneous
  Country: US (occurrence: US)
  Receive Date: 20210721
  Receipt Date: 20210826
  Transmission Date: 20211014
  Serious: No
  Sender: FDA-Public Use
  Company Number: US-VERTEX PHARMACEUTICALS-2021-006301

PATIENT
  Age: 45 Year
  Sex: Female

DRUGS (21)
  1. TRIKAFTA [Suspect]
     Active Substance: ELEXACAFTOR\IVACAFTOR\TEZACAFTOR
     Indication: CYSTIC FIBROSIS
     Dosage: 2 ORANGE TABS AM ; 1 BLUE TAB PM
     Route: 048
     Dates: start: 201911
  2. ADVAIR HFA [Concomitant]
     Active Substance: FLUTICASONE PROPIONATE\SALMETEROL XINAFOATE
     Dosage: 500?50 MCG
  3. ZOFRAN [Concomitant]
     Active Substance: ONDANSETRON HYDROCHLORIDE
     Indication: NAUSEA
     Dosage: 1 TAB (4 MILLIGRAM)
     Route: 048
  4. PULMICORT TURBUHALER [Concomitant]
     Active Substance: BUDESONIDE
     Indication: IRRIGATION THERAPY
     Dosage: 2 ML (0.5 MG) TO 240 MLOF STERILE SALINE
  5. ALTERRA [Concomitant]
     Dosage: 1 EACH AS DIRECTED
     Route: 055
  6. PROAIR HFA [Concomitant]
     Active Substance: ALBUTEROL SULFATE
     Dosage: 2 INHALATIONS (90 MICROGRAM) INTO LUNGS
  7. VITAMIN D3 [Concomitant]
     Active Substance: CHOLECALCIFEROL
     Dosage: 2000 INTERNATIONAL UNIT, QD
     Route: 048
  8. COLOMYCIN [COLISTIMETHATE SODIUM;SODIUM CHLORIDE] [Concomitant]
     Dosage: 1 ML (75 MILLIGRAM) INTO LUNGS, BID RECONSITUTE OF COLISTIN, ALTERNATE Q28 DAYS
  9. PULMOZYME [Concomitant]
     Active Substance: DORNASE ALFA
     Dosage: 2.5 ML TOTAL, BID
     Route: 055
  10. SODIUM CHLORIDE. [Concomitant]
     Active Substance: SODIUM CHLORIDE
     Dosage: 4 ML
     Route: 055
  11. ZINC ACETATE DIHYDRATE [Concomitant]
     Dosage: 30 MILLIGRAM, QD
     Route: 048
  12. COZAAR [Concomitant]
     Active Substance: LOSARTAN POTASSIUM
     Dosage: 25 MILLIGRAM, QD
     Route: 048
  13. ACCUNEB [Concomitant]
     Active Substance: ALBUTEROL SULFATE
     Indication: WHEEZING
     Dosage: 3 ML (0.63 MILLIGRAM)
     Route: 055
  14. ZITHROMAX [Concomitant]
     Active Substance: AZITHROMYCIN DIHYDRATE
     Dosage: 1 TAB (500 MILLIGRAM) EVERY M, W, F
  15. BUDESONIDE. [Concomitant]
     Active Substance: BUDESONIDE
     Dosage: 0.6 MILLIGRAM, BID
  16. EPIPEN [Concomitant]
     Active Substance: EPINEPHRINE
     Indication: ANAPHYLACTIC REACTION
     Dosage: 0.3 ML (0.3 MG) AS NEEDED
     Route: 030
  17. SODIUM CHLORIDE. [Concomitant]
     Active Substance: SODIUM CHLORIDE
     Dosage: 240ML 0.9 %, BID RECONSTITUE WITH BUDESONIDE
     Route: 055
  18. SINGULAIR [Concomitant]
     Active Substance: MONTELUKAST SODIUM
     Dosage: 10 MILLIGRAM, QD
     Route: 048
  19. BETHKIS [Concomitant]
     Active Substance: TOBRAMYCIN
     Dosage: 300MG/4 ML 2 TIMES DAILY ALTERNATIVE WITH COLISTIN
     Route: 055
  20. ALLEGRA [Concomitant]
     Active Substance: FEXOFENADINE HYDROCHLORIDE
     Dosage: 1 TAB (180 MILLIGRAM) DAILY
     Route: 048
  21. SODIUM CHLORIDE. [Concomitant]
     Active Substance: SODIUM CHLORIDE
     Dosage: RECONSTITUTE 150 MG OF COLISTIN WITH 5 ML OF SODIUM CHLORIDE
     Route: 055

REACTIONS (2)
  - Anxiety [Unknown]
  - Mental disorder [Not Recovered/Not Resolved]

NARRATIVE: CASE EVENT DATE: 202007
